FAERS Safety Report 5633075-2 (Version None)
Quarter: 2008Q1

REPORT INFORMATION
  Report Type: 
  Country: None (occurrence: None)
  Receive Date: 20080221
  Receipt Date: 20080214
  Transmission Date: 20080703
  Serious: Yes (Death, Life-Threatening, Hospitalization)
  Sender: FDA-Public Use
  Company Number: DE-AVENTIS-200810429DE

PATIENT
  Age: 77 Year
  Sex: Male

DRUGS (38)
  1. LASIX [Suspect]
     Dosage: DOSE: 3X125
     Route: 048
     Dates: start: 20041026, end: 20041115
  2. NITRAZEPAM [Suspect]
     Indication: AGITATION
     Route: 048
     Dates: start: 20041021, end: 20041022
  3. NITRAZEPAM [Suspect]
     Route: 048
     Dates: start: 20041028, end: 20041030
  4. NITRAZEPAM [Suspect]
     Route: 048
     Dates: start: 20041108, end: 20041109
  5. PANTOZOL                           /01263202/ [Suspect]
     Route: 048
     Dates: start: 20041013, end: 20041116
  6. MUCOSOLVAN [Suspect]
     Dosage: DOSE: 1-1-1
     Route: 048
     Dates: start: 20041023, end: 20041110
  7. VANCOMYCIN [Suspect]
     Indication: SEPSIS
     Dosage: DOSE: NOT REPORTED
     Route: 042
     Dates: start: 20041028, end: 20041029
  8. VANCOMYCIN [Suspect]
     Dosage: DOSE: NOT REPORTED
     Route: 042
     Dates: start: 20041101, end: 20041102
  9. VANCOMYCIN [Suspect]
     Dosage: DOSE: NOT REPORTED
     Route: 042
     Dates: start: 20041112, end: 20041112
  10. VANCOMYCIN [Suspect]
     Dosage: DOSE: NOT REPORTED
     Route: 042
     Dates: start: 20041115, end: 20041116
  11. EUNERPAN [Suspect]
     Indication: DEPRESSION
     Route: 048
     Dates: start: 20041028, end: 20041116
  12. FENISTIL [Suspect]
     Indication: PRURITUS
     Dosage: DOSE: NOT REPORTED
     Route: 048
     Dates: start: 20041109, end: 20041118
  13. RIFAMPICIN [Suspect]
     Indication: SEPSIS
     Route: 042
     Dates: start: 20041104, end: 20041112
  14. BALDRIAN-DISPERT [Concomitant]
     Indication: AGITATION
     Route: 048
     Dates: start: 20041021, end: 20041021
  15. CIPROBAY                           /00697202/ [Concomitant]
     Indication: CYSTITIS
     Route: 048
     Dates: start: 20041017, end: 20041023
  16. TILIDIN [Concomitant]
     Dosage: DOSE: NOT REPORTED
     Route: 048
     Dates: start: 20041020, end: 20041021
  17. TILIDIN [Concomitant]
     Dosage: DOSE: NOT REPORTED
     Route: 048
     Dates: start: 20041025, end: 20041025
  18. TAVEGIL                            /00137201/ [Concomitant]
     Indication: PRURITUS
     Route: 048
     Dates: start: 20041021, end: 20041105
  19. SODIUM CHLORIDE [Concomitant]
     Dosage: DOSE: NOT REPORTED
     Route: 042
     Dates: start: 20041018, end: 20041102
  20. TRAMAL [Concomitant]
     Route: 048
     Dates: start: 20041022, end: 20041022
  21. TRAMAL [Concomitant]
     Route: 048
     Dates: start: 20041024, end: 20041024
  22. NOVALGIN                           /00039501/ [Concomitant]
     Route: 048
     Dates: start: 20041023, end: 20041023
  23. BAYOTENSIN [Concomitant]
     Route: 048
     Dates: start: 20041023, end: 20041023
  24. ZIENAM [Concomitant]
     Indication: SEPSIS
     Route: 042
     Dates: start: 20041023, end: 20041104
  25. NAC DIAGNOSTIC REAGENT [Concomitant]
     Dosage: DOSE: 1-1-1
     Route: 048
     Dates: start: 20041023, end: 20041105
  26. ACETAMINOPHEN [Concomitant]
     Dosage: DOSE: NOT REPORTED
     Route: 054
     Dates: start: 20041023, end: 20041023
  27. ACETAMINOPHEN [Concomitant]
     Dosage: DOSE: NOT REPORTED
     Route: 054
     Dates: start: 20041115, end: 20041115
  28. BUPRENORPHINE HCL [Concomitant]
     Route: 058
     Dates: start: 20041024, end: 20041024
  29. DIAZEPAM [Concomitant]
     Indication: AGITATION
     Dates: start: 20041027, end: 20041027
  30. TURIXIN [Concomitant]
     Dosage: DOSE: 1-1-1
     Route: 061
     Dates: start: 20041028, end: 20041105
  31. POTASSIUM CHLORIDE W/SODIUM CHLORIDE [Concomitant]
     Indication: DIALYSIS
     Dosage: DOSE: NOT REPORTED
     Route: 042
     Dates: start: 20041109, end: 20041110
  32. GENTAMICIN [Concomitant]
     Indication: SEPSIS
     Dosage: DOSE: 1X80/1X40
     Route: 042
     Dates: start: 20041112, end: 20041118
  33. DECORTIN [Concomitant]
     Indication: DRUG USE FOR UNKNOWN INDICATION
     Route: 048
     Dates: start: 20041113, end: 20041114
  34. LOPERAMID [Concomitant]
     Route: 048
     Dates: start: 20041114, end: 20041114
  35. LOPERAMID [Concomitant]
     Route: 048
     Dates: start: 20041116, end: 20041118
  36. HEPARIN [Concomitant]
     Indication: THROMBOSIS PROPHYLAXIS
     Dates: start: 20041115, end: 20041118
  37. SOLU-DECORTIN-H [Concomitant]
     Dosage: DOSE: 1-0-0
     Route: 042
     Dates: start: 20041117, end: 20041118
  38. CORTICOSTEROIDS [Concomitant]
     Dosage: DOSE: 1-0-0
     Route: 061
     Dates: start: 20041117, end: 20041118

REACTIONS (8)
  - CONJUNCTIVITIS [None]
  - ERYTHEMA [None]
  - GENITAL EROSION [None]
  - LIP EROSION [None]
  - MUCOUS MEMBRANE DISORDER [None]
  - PRURITUS [None]
  - SKIN DISORDER [None]
  - TOXIC EPIDERMAL NECROLYSIS [None]
